FAERS Safety Report 6658543-6 (Version None)
Quarter: 2010Q1

REPORT INFORMATION
  Report Type: 
  Country: None (occurrence: None)
  Receive Date: 20100330
  Receipt Date: 20100304
  Transmission Date: 20100710
  Serious: No
  Sender: FDA-Public Use
  Company Number: US-BIOGENIDEC-2010BI007597

PATIENT
  Age: 38 Year
  Sex: Female

DRUGS (3)
  1. TYSABRI [Suspect]
     Indication: MULTIPLE SCLEROSIS
     Route: 042
     Dates: start: 20050111, end: 20050101
  2. TYSABRI [Suspect]
     Route: 042
     Dates: start: 20060920, end: 20080108
  3. TYSABRI [Suspect]
     Route: 042
     Dates: start: 20081009

REACTIONS (1)
  - URINARY TRACT INFECTION [None]
